FAERS Safety Report 8691408 (Version 2)
Quarter: 2013Q2

REPORT INFORMATION
  Report Type: Report from Study
  Country: BE (occurrence: BE)
  Receive Date: 20120730
  Receipt Date: 20130522
  Transmission Date: 20140414
  Serious: Yes (Hospitalization)
  Sender: FDA-Public Use
  Company Number: BE-MPIJNJ-2012-05050

PATIENT
  Sex: 0

DRUGS (14)
  1. VELCADE [Suspect]
     Indication: PLASMA CELL MYELOMA
     Dosage: 2.58 MG, UNK
     Route: 065
     Dates: start: 20120625, end: 20120705
  2. REVLIMID [Suspect]
     Indication: PLASMA CELL MYELOMA
     Dosage: 25 UNK, UNK
     Route: 065
     Dates: start: 20120625, end: 20120708
  3. DEXAMETHASONE [Suspect]
     Indication: PLASMA CELL MYELOMA
     Dosage: 20 MG, UNK
     Route: 065
     Dates: start: 20120625, end: 20120706
  4. TAMSULOSINE HCL A [Concomitant]
     Dosage: 320 MG, UNK
     Route: 048
     Dates: start: 2002
  5. ZYRTEC [Concomitant]
     Indication: PRURITUS
     Dosage: 5 MG, UNK
     Route: 048
     Dates: start: 2006
  6. GAVISCON                           /00237601/ [Concomitant]
     Indication: DYSPEPSIA
     Dosage: UNK
     Route: 048
     Dates: start: 20120705, end: 20120719
  7. AMOXICILLINE                       /00249602/ [Concomitant]
     Indication: PROPHYLAXIS
     Dosage: UNK
     Route: 048
     Dates: start: 20120625
  8. ACICLOVIR [Concomitant]
     Indication: PROPHYLAXIS
     Dosage: 400 MG, UNK
     Route: 048
     Dates: start: 20120625
  9. CLEXANE [Concomitant]
     Indication: PROPHYLAXIS
     Dosage: 40 MG, UNK
     Route: 058
     Dates: start: 20120625
  10. D-CURE [Concomitant]
     Indication: PROPHYLAXIS
     Dosage: UNK
     Route: 048
     Dates: start: 20120625
  11. CALCIUM CARBONATE [Concomitant]
     Indication: PROPHYLAXIS
     Dosage: UNK
     Route: 048
     Dates: start: 20120625
  12. ZOMETA [Concomitant]
     Indication: PROPHYLAXIS
     Dosage: 40 MG, UNK
     Route: 042
     Dates: start: 20120625
  13. BACTRIM [Concomitant]
     Indication: PROPHYLAXIS
     Dosage: UNK
     Route: 048
     Dates: start: 20120625
  14. FOLIC ACID [Concomitant]
     Indication: PROPHYLAXIS
     Dosage: 1 MG, UNK
     Route: 048
     Dates: start: 20120625

REACTIONS (1)
  - Colitis [Recovered/Resolved]
